FAERS Safety Report 25659443 (Version 1)
Quarter: 2025Q3

REPORT INFORMATION
  Report Type: Spontaneous
  Country: US (occurrence: US)
  Receive Date: 20250808
  Receipt Date: 20250808
  Transmission Date: 20251020
  Serious: Yes (Other)
  Sender: MYLAN
  Company Number: US-MYLANLABS-2025M1066196

PATIENT
  Age: 82 Year
  Sex: Female

DRUGS (28)
  1. PREDNISONE [Suspect]
     Active Substance: PREDNISONE
     Indication: Ulcerative keratitis
     Dosage: 30 MILLIGRAM, QD
     Route: 048
  2. PREDNISONE [Suspect]
     Active Substance: PREDNISONE
     Dosage: 30 MILLIGRAM, QD
  3. PREDNISONE [Suspect]
     Active Substance: PREDNISONE
     Dosage: 30 MILLIGRAM, QD
  4. PREDNISONE [Suspect]
     Active Substance: PREDNISONE
     Dosage: 30 MILLIGRAM, QD
     Route: 048
  5. PREDNISONE [Suspect]
     Active Substance: PREDNISONE
     Route: 065
  6. PREDNISONE [Suspect]
     Active Substance: PREDNISONE
  7. PREDNISONE [Suspect]
     Active Substance: PREDNISONE
  8. PREDNISONE [Suspect]
     Active Substance: PREDNISONE
     Route: 065
  9. VALACYCLOVIR [Concomitant]
     Active Substance: VALACYCLOVIR HYDROCHLORIDE
     Indication: Ulcerative keratitis
     Dosage: 1 GRAM, QD
  10. VALACYCLOVIR [Concomitant]
     Active Substance: VALACYCLOVIR HYDROCHLORIDE
     Dosage: 1 GRAM, QD
     Route: 065
  11. VALACYCLOVIR [Concomitant]
     Active Substance: VALACYCLOVIR HYDROCHLORIDE
     Dosage: 1 GRAM, QD
     Route: 065
  12. VALACYCLOVIR [Concomitant]
     Active Substance: VALACYCLOVIR HYDROCHLORIDE
     Dosage: 1 GRAM, QD
  13. METHOTREXATE [Concomitant]
     Active Substance: METHOTREXATE
     Indication: Ulcerative keratitis
     Dosage: 10 MILLIGRAM, QW
  14. METHOTREXATE [Concomitant]
     Active Substance: METHOTREXATE
     Dosage: 10 MILLIGRAM, QW
     Route: 048
  15. METHOTREXATE [Concomitant]
     Active Substance: METHOTREXATE
     Dosage: 10 MILLIGRAM, QW
     Route: 048
  16. METHOTREXATE [Concomitant]
     Active Substance: METHOTREXATE
     Dosage: 10 MILLIGRAM, QW
  17. METHOTREXATE [Concomitant]
     Active Substance: METHOTREXATE
     Dosage: 12.5 MILLIGRAM, QW, AT 2-MONTH FOLLOW-UP
  18. METHOTREXATE [Concomitant]
     Active Substance: METHOTREXATE
     Dosage: 12.5 MILLIGRAM, QW, AT 2-MONTH FOLLOW-UP
     Route: 048
  19. METHOTREXATE [Concomitant]
     Active Substance: METHOTREXATE
     Dosage: 12.5 MILLIGRAM, QW, AT 2-MONTH FOLLOW-UP
  20. METHOTREXATE [Concomitant]
     Active Substance: METHOTREXATE
     Dosage: 12.5 MILLIGRAM, QW, AT 2-MONTH FOLLOW-UP
     Route: 048
  21. METHOTREXATE [Concomitant]
     Active Substance: METHOTREXATE
     Route: 048
  22. METHOTREXATE [Concomitant]
     Active Substance: METHOTREXATE
     Route: 048
  23. METHOTREXATE [Concomitant]
     Active Substance: METHOTREXATE
  24. METHOTREXATE [Concomitant]
     Active Substance: METHOTREXATE
  25. FOLIC ACID [Concomitant]
     Active Substance: FOLIC ACID
     Indication: Ulcerative keratitis
     Dosage: 1 MILLIGRAM, QD
  26. FOLIC ACID [Concomitant]
     Active Substance: FOLIC ACID
     Dosage: 1 MILLIGRAM, QD
     Route: 065
  27. FOLIC ACID [Concomitant]
     Active Substance: FOLIC ACID
     Dosage: 1 MILLIGRAM, QD
     Route: 065
  28. FOLIC ACID [Concomitant]
     Active Substance: FOLIC ACID
     Dosage: 1 MILLIGRAM, QD

REACTIONS (2)
  - Psychiatric symptom [Unknown]
  - Fall [Unknown]
